FAERS Safety Report 4445154-6 (Version None)
Quarter: 2004Q3

REPORT INFORMATION
  Report Type: 
  Country: None (occurrence: None)
  Receive Date: 20040907
  Receipt Date: 20040826
  Transmission Date: 20050211
  Serious: Yes (Life-Threatening)
  Sender: FDA-Public Use
  Company Number: 2004060869

PATIENT
  Age: 1 Day
  Sex: Male
  Weight: 1.14 kg

DRUGS (2)
  1. VIRACEPT [Suspect]
     Indication: HIV TEST POSITIVE
     Dates: end: 20040219
  2. ZIDOVUDINE W/LAMIVUDINE (LAMIVUDINE, ZIDOVUDINE) [Suspect]
     Indication: HIV TEST POSITIVE
     Dosage: (2 IN 1 D), ORAL
     Route: 048

REACTIONS (13)
  - ABDOMINAL PAIN UPPER [None]
  - ALBUMINURIA [None]
  - BLOOD CREATININE INCREASED [None]
  - CAESAREAN SECTION [None]
  - CALCINOSIS [None]
  - ERYSIPELAS [None]
  - PLACENTAL DISORDER [None]
  - PLACENTAL INSUFFICIENCY [None]
  - PLATELET COUNT DECREASED [None]
  - PRE-ECLAMPSIA [None]
  - PREGNANCY [None]
  - PREMATURE BABY [None]
  - ULTRASOUND ANTENATAL SCREEN ABNORMAL [None]
